FAERS Safety Report 8164121-2 (Version None)
Quarter: 2012Q1

REPORT INFORMATION
  Report Type: 
  Country: None (occurrence: None)
  Receive Date: 20120224
  Receipt Date: 20120222
  Transmission Date: 20120608
  Serious: Yes (Other)
  Sender: FDA-Public Use
  Company Number: BR-PFIZER INC-2012047752

PATIENT
  Age: 68 Year
  Sex: Female
  Weight: 56 kg

DRUGS (4)
  1. ENALAPRIL [Concomitant]
     Indication: BLOOD PRESSURE DECREASED
     Dosage: UNK
  2. AMLODIPINE [Concomitant]
     Indication: BLOOD PRESSURE DECREASED
     Dosage: UNK
  3. VARENICLINE TARTRATE [Suspect]
     Dosage: UNK
     Route: 048
  4. CLINFAR [Concomitant]
     Indication: BLOOD CHOLESTEROL
     Dosage: UNK

REACTIONS (1)
  - BLOOD PRESSURE DECREASED [None]
